FAERS Safety Report 8545637-3 (Version None)
Quarter: 2012Q3

REPORT INFORMATION
  Report Type: 
  Country: None (occurrence: None)
  Receive Date: 20120727
  Receipt Date: 20120723
  Transmission Date: 20120928
  Serious: Yes (Death, Hospitalization)
  Sender: FDA-Public Use
  Company Number: IT-ASTRAZENECA-2012SE39976

PATIENT
  Age: 26502 Day
  Sex: Female

DRUGS (13)
  1. DEXAMETHASONE SODIUM PHOSPHATE [Concomitant]
     Indication: BRAIN OEDEMA
     Dosage: 8 MG/2 ML SOLUTION FOR INJECTION 16 MG
     Route: 042
     Dates: start: 20111013, end: 20111021
  2. METHOTREXATE [Suspect]
     Dosage: II CYCLE: 2.5G/MQ-4600MG
     Route: 042
     Dates: start: 20111120
  3. GADRAL [Concomitant]
     Dosage: 800 MG/10 ML ORAL SUSPENSION
     Route: 048
     Dates: start: 20111022, end: 20111024
  4. PROMAZINE HYDROCHLORIDE [Concomitant]
     Dosage: 4 GR/ 100 DROPS
     Route: 048
     Dates: start: 20110930, end: 20111029
  5. ENOXAPARIN SODIUM [Concomitant]
     Indication: THROMBOSIS PROPHYLAXIS
     Dosage: 4000 UI SOLUTION FOR INJECTION 1DF
     Route: 058
     Dates: start: 20110928, end: 20111030
  6. METHOTREXATE [Suspect]
     Indication: CENTRAL NERVOUS SYSTEM LYMPHOMA
     Dosage: I CYCLE: 5G/M-8600MG
     Route: 042
     Dates: start: 20111022, end: 20111022
  7. LAMIVUDINE [Concomitant]
     Indication: PROPHYLAXIS
     Dosage: 100 MG FILM-COATED TABLETS 1DF
     Route: 048
     Dates: start: 20111021, end: 20111024
  8. OMEPRAZOLE [Suspect]
     Indication: PROPHYLAXIS
     Route: 048
     Dates: start: 20110927, end: 20111029
  9. LENDERFOLIN [Concomitant]
     Indication: TOXICITY TO VARIOUS AGENTS
     Dosage: 175 MG POWDER FOR INFUSION
     Route: 042
     Dates: start: 20111023, end: 20111031
  10. ZOFRAN [Concomitant]
     Indication: PROPHYLAXIS OF NAUSEA AND VOMITING
     Dosage: 40 MG/20 ML SOLUTION FOR INJECTION
     Route: 042
     Dates: start: 20111022, end: 20111024
  11. METHOTREXATE [Suspect]
     Dosage: III CYCLE
     Route: 042
  12. ALLOPURINOL [Concomitant]
     Indication: HYPERURICAEMIA
     Route: 048
     Dates: start: 20111020, end: 20111025
  13. ESAFOSFINA [Concomitant]
     Dosage: 10 GR./100 ML SOLUTION FOR INFUSION 100ML
     Route: 042
     Dates: start: 20111020, end: 20111116

REACTIONS (4)
  - WALDENSTROM'S MACROGLOBULINAEMIA [None]
  - ALANINE AMINOTRANSFERASE INCREASED [None]
  - ASPARTATE AMINOTRANSFERASE INCREASED [None]
  - BLOOD LACTATE DEHYDROGENASE INCREASED [None]
